FAERS Safety Report 8014622-2 (Version None)
Quarter: 2011Q4

REPORT INFORMATION
  Report Type: 
  Country: None (occurrence: None)
  Receive Date: 20111229
  Receipt Date: 20111227
  Transmission Date: 20120403
  Serious: Yes (Hospitalization, Other)
  Sender: FDA-Public Use
  Company Number: JP-B.I. PHARMACEUTICALS,INC./RIDGEFIELD-2011-BP-24549NB

PATIENT
  Age: 58 Year
  Sex: Male
  Weight: 77.8 kg

DRUGS (6)
  1. SUNRYTHM [Suspect]
     Dosage: 50 MG
     Route: 048
     Dates: start: 20111017, end: 20111017
  2. BISOPROLOL FUMARATE [Concomitant]
     Dosage: 2.5 MG
     Route: 065
  3. ALDACTONE [Concomitant]
     Dosage: 25 MG
     Route: 065
  4. PRADAXA [Suspect]
     Dosage: 220 MG
     Route: 048
     Dates: start: 20111017, end: 20111018
  5. VERAPAMIL HCL [Suspect]
     Dosage: 40 MG
     Route: 048
     Dates: start: 20111018, end: 20111018
  6. AMIODARONE HYDROCHLORIDE [Suspect]
     Dosage: 100 MG
     Route: 048
     Dates: start: 20111018, end: 20111018

REACTIONS (8)
  - HEPATITIS FULMINANT [None]
  - MULTI-ORGAN FAILURE [None]
  - HYPERBILIRUBINAEMIA [None]
  - INTERNATIONAL NORMALISED RATIO INCREASED [None]
  - ASPARTATE AMINOTRANSFERASE INCREASED [None]
  - CARDIAC FAILURE CONGESTIVE [None]
  - RENAL FAILURE ACUTE [None]
  - ALANINE AMINOTRANSFERASE INCREASED [None]
